FAERS Safety Report 8115889 (Version 4)
Quarter: 2013Q2

REPORT INFORMATION
  Report Type: Spontaneous
  Country: US (occurrence: None)
  Receive Date: 20110831
  Receipt Date: 20121218
  Transmission Date: 20140414
  Serious: Yes (Other)
  Sender: FDA-Public Use
  Company Number: PHHY2011US31394

PATIENT
  Sex: Female

DRUGS (1)
  1. ZOMETA [Suspect]
     Indication: PLASMA CELL MYELOMA
     Dosage: INTRAVENOUS, INTRAVENOUS
     Route: 042
     Dates: start: 20080930

REACTIONS (2)
  - OSTEONECROSIS OF JAW [None]
  - TOOTH DISORDER [None]
